FAERS Safety Report 6784815-0 (Version None)
Quarter: 2010Q2

REPORT INFORMATION
  Report Type: 
  Country: None (occurrence: None)
  Receive Date: 20100622
  Receipt Date: 20100609
  Transmission Date: 20101027
  Serious: Yes (Hospitalization, Other)
  Sender: FDA-Public Use
  Company Number: US-RB-011923-10

PATIENT
  Age: 57 Year
  Sex: Male
  Weight: 103.5 kg

DRUGS (20)
  1. MUCINEX [Suspect]
     Route: 048
  2. COMPAZINE [Suspect]
  3. PROAIR HFA [Suspect]
     Dosage: 2 PUFFS EVERY 6 HOURS AS NEEDED
  4. PRISTIQ [Suspect]
     Indication: DEPRESSION
     Route: 048
  5. FLONASE [Suspect]
     Dosage: 2 SPRAYS IN EACH NOSTRIL DAILY
     Route: 045
  6. PRAVACHOL [Suspect]
     Dosage: AFTER DINNER
  7. WARFARIN [Suspect]
     Route: 048
  8. LORAZEPAM [Suspect]
     Dosage: AS NEEDED AT BEDTIME
  9. CORDARONE [Suspect]
     Dosage: AFTER A MEAL
  10. LOPRESSOR [Suspect]
     Indication: ATRIAL FIBRILLATION
     Dosage: AFTER A MEAL
  11. LANOXIN [Suspect]
  12. AMOXICILLIN [Suspect]
     Route: 048
  13. NITROGLYCERIN [Suspect]
     Indication: CHEST PAIN
     Route: 060
  14. NASONEX [Suspect]
     Dosage: 2 SPRAYS IN EACH NOSTRIL DAILY
     Route: 045
  15. PRINIVIL [Suspect]
  16. NEXIUM [Suspect]
  17. VIAGRA [Suspect]
     Indication: ERECTILE DYSFUNCTION
  18. VIAGRA [Suspect]
  19. ACETYLSALICYLIC ACID [Concomitant]
  20. ZOLOFT [Suspect]
     Indication: DEPRESSION
     Route: 048
     Dates: start: 20090101

REACTIONS (22)
  - ANGINA UNSTABLE [None]
  - ANXIETY [None]
  - ASTHENIA [None]
  - ATRIAL FIBRILLATION [None]
  - BARRETT'S OESOPHAGUS [None]
  - BENIGN PROSTATIC HYPERPLASIA [None]
  - BLOOD CHOLESTEROL INCREASED [None]
  - CHEST PAIN [None]
  - CONSTIPATION [None]
  - DYSPNOEA [None]
  - ERECTILE DYSFUNCTION [None]
  - ESSENTIAL HYPERTENSION [None]
  - GASTROENTERITIS [None]
  - HYPERHIDROSIS [None]
  - NAUSEA [None]
  - OBESITY [None]
  - PAIN IN EXTREMITY [None]
  - PANCREATITIS [None]
  - RHINITIS ALLERGIC [None]
  - SENSATION OF PRESSURE [None]
  - SINUS BRADYCARDIA [None]
  - URETERAL DISORDER [None]
